FAERS Safety Report 4743699-2 (Version None)
Quarter: 2005Q3

REPORT INFORMATION
  Report Type: 
  Country: None (occurrence: None)
  Receive Date: 20050809
  Receipt Date: 20050728
  Transmission Date: 20060218
  Serious: Yes (Other)
  Sender: FDA-Public Use
  Company Number: 142683USA

PATIENT
  Age: 37 Year
  Sex: Male

DRUGS (7)
  1. PIMOZIDE [Suspect]
     Indication: SCHIZOPHRENIA
     Dosage: 2 MILLIGRAM
     Route: 048
     Dates: start: 20050615, end: 20050623
  2. CLOZAPINE [Suspect]
     Dosage: 25 MILLIGRAM ORAL
     Route: 048
     Dates: start: 20050406
  3. RISPERADONE [Suspect]
     Dosage: ORAL
     Route: 048
     Dates: start: 20041203
  4. HALOPERIDOL [Suspect]
     Dosage: ORAL
     Route: 048
     Dates: start: 20050410
  5. DESLORATADINE [Concomitant]
  6. PROCYCLIDINE HYDROCHLORIDE 2MG TAB [Concomitant]
  7. LORAZEPAM [Concomitant]

REACTIONS (2)
  - ATRIAL FIBRILLATION [None]
  - ELECTROCARDIOGRAM QT PROLONGED [None]
